FAERS Safety Report 6402537-2 (Version None)
Quarter: 2009Q4

REPORT INFORMATION
  Report Type: 
  Country: None (occurrence: None)
  Receive Date: 20091009
  Receipt Date: 20090930
  Transmission Date: 20100525
  Serious: Yes (Hospitalization)
  Sender: FDA-Public Use
  Company Number: ADR34622009

PATIENT
  Age: 58 Year
  Sex: Female

DRUGS (3)
  1. CIPROFLOXACIN [Suspect]
     Dosage: 500 MG
     Dates: start: 20050914, end: 20050922
  2. SIMVASTATIN [Suspect]
     Dosage: 20 MG
     Dates: start: 20050914, end: 20050923
  3. LEVOTHYROXINE SODIUM [Concomitant]

REACTIONS (1)
  - HEPATITIS [None]
